FAERS Safety Report 8830798 (Version 1)
Quarter: 2012Q4

REPORT INFORMATION
  Report Type: 
  Country: SG (occurrence: SG)
  Receive Date: 20121009
  Receipt Date: 20121009
  Transmission Date: 20130627
  Serious: Yes (Other)
  Sender: FDA-Public Use
  Company Number: SG-JNJFOC-20121004653

PATIENT
  Age: 52 Year
  Sex: Female

DRUGS (2)
  1. ZYRTEC [Suspect]
     Route: 065
  2. ZYRTEC [Suspect]
     Indication: PRODUCT USED FOR UNKNOWN INDICATION
     Route: 065

REACTIONS (1)
  - Rash [Unknown]
